FAERS Safety Report 4314039-8 (Version None)
Quarter: 2004Q1

REPORT INFORMATION
  Report Type: 
  Country: None (occurrence: None)
  Receive Date: 20040305
  Receipt Date: 20040224
  Transmission Date: 20041129
  Serious: Yes (Hospitalization, Other)
  Sender: FDA-Public Use
  Company Number: BE-JNJFOC-20031005115

PATIENT
  Age: 60 Year
  Sex: Female

DRUGS (9)
  1. RISPERDAL [Suspect]
     Indication: DELUSIONAL DISORDER, PERSECUTORY TYPE
     Dosage: 2 MG, IN 1 DAY, ORAL
     Route: 048
     Dates: start: 20020406, end: 20020423
  2. LORAZEPAM [Concomitant]
  3. FLIXOTIDE (FLUTICASONE) [Concomitant]
  4. ACCOLATE [Concomitant]
  5. SEREVENT [Concomitant]
  6. XANTHUM (THEOPHYLLINE) [Concomitant]
  7. TRAZOLAN (TRAZODONE HYDROCHLORIDE) [Concomitant]
  8. MESULID (NIMESULIDE) [Concomitant]
  9. SERLAIN (SERTRALINE) [Concomitant]

REACTIONS (5)
  - C-REACTIVE PROTEIN INCREASED [None]
  - CARDIAC FAILURE [None]
  - HAEMOGLOBIN DECREASED [None]
  - PULMONARY OEDEMA [None]
  - WHITE BLOOD CELL COUNT INCREASED [None]
